FAERS Safety Report 14743218 (Version 1)
Quarter: 2018Q2

REPORT INFORMATION
  Report Type: Report from Study
  Country: DE (occurrence: DE)
  Receive Date: 20180410
  Receipt Date: 20180410
  Transmission Date: 20180711
  Serious: Yes (Hospitalization)
  Sender: FDA-Public Use
  Company Number: DE-ELI_LILLY_AND_COMPANY-DE201803013396

PATIENT
  Age: 56 Year
  Sex: Female

DRUGS (1)
  1. TERIPARATIDE [Suspect]
     Active Substance: TERIPARATIDE
     Indication: OSTEOPOROSIS
     Dosage: UNK, DAILY
     Route: 058
     Dates: start: 20171201

REACTIONS (4)
  - Bronchitis [Recovering/Resolving]
  - Anaemia [Recovering/Resolving]
  - Pneumonia [Recovering/Resolving]
  - Asthenia [Not Recovered/Not Resolved]
